FAERS Safety Report 8320839-X (Version None)
Quarter: 2012Q2

REPORT INFORMATION
  Report Type: 
  Country: None (occurrence: None)
  Receive Date: 20120430
  Receipt Date: 20120423
  Transmission Date: 20120825
  Serious: Yes (Hospitalization)
  Sender: FDA-Public Use
  Company Number: PHHY2012AR034639

PATIENT
  Sex: Female

DRUGS (1)
  1. EXELON [Suspect]
     Indication: COGNITIVE DISORDER
     Dosage: 4.6 MG/24 HR (PATCH 5)
     Route: 062
     Dates: start: 20120101, end: 20120323

REACTIONS (1)
  - CEREBROVASCULAR ACCIDENT [None]
